FAERS Safety Report 23672103 (Version 1)
Quarter: 2024Q1

REPORT INFORMATION
  Report Type: Spontaneous
  Country: RO (occurrence: RO)
  Receive Date: 20240326
  Receipt Date: 20240326
  Transmission Date: 20240410
  Serious: Yes (Other)
  Sender: FDA-Public Use
  Company Number: RO-ASTELLAS-2024US008547

PATIENT
  Age: 41 Year
  Sex: Male

DRUGS (4)
  1. ENZALUTAMIDE [Suspect]
     Active Substance: ENZALUTAMIDE
     Indication: Prostate cancer
     Route: 065
     Dates: start: 201907
  2. GOSERELIN [Concomitant]
     Active Substance: GOSERELIN
     Indication: Prostate cancer
     Dosage: 10.8 MG/12 WEEKS
     Route: 065
     Dates: start: 201505, end: 201605
  3. GOSERELIN [Concomitant]
     Active Substance: GOSERELIN
     Dosage: 10.8 MG/12 WEEKS
     Route: 065
     Dates: start: 201611, end: 201708
  4. GOSERELIN [Concomitant]
     Active Substance: GOSERELIN
     Dosage: 10.8 MG/12 WEEKS
     Route: 065
     Dates: start: 201803

REACTIONS (6)
  - Malignant neoplasm progression [Unknown]
  - Intervertebral disc protrusion [Unknown]
  - Urinary tract infection [Unknown]
  - Back pain [Unknown]
  - Prostatic specific antigen increased [Recovered/Resolved]
  - Prostatic specific antigen increased [Recovered/Resolved]

NARRATIVE: CASE EVENT DATE: 20200105
